FAERS Safety Report 24190245 (Version 1)
Quarter: 2024Q3

REPORT INFORMATION
  Report Type: Spontaneous
  Country: CN (occurrence: CN)
  Receive Date: 20240808
  Receipt Date: 20240808
  Transmission Date: 20241017
  Serious: Yes (Other)
  Sender: MERCK
  Company Number: CN-009507513-2408CHN000812

PATIENT
  Age: 65 Year
  Sex: Male
  Weight: 75 kg

DRUGS (2)
  1. CILASTATIN SODIUM\IMIPENEM [Suspect]
     Active Substance: CILASTATIN SODIUM\IMIPENEM
     Indication: Anti-infective therapy
     Dosage: 0.5 VIAL (ALSO REPORTED AS 0.25G IN THE ORIGINAL AGENCY REPORT), Q8H
     Route: 041
     Dates: start: 20240520, end: 20240606
  2. TRAMADOL HYDROCHLORIDE [Concomitant]
     Active Substance: TRAMADOL HYDROCHLORIDE
     Indication: Analgesic therapy
     Dosage: 0.1 GRAM, BID
     Route: 030
     Dates: start: 20240519, end: 20240606

REACTIONS (2)
  - Delirium [Recovering/Resolving]
  - Incorrect dose administered [Unknown]

NARRATIVE: CASE EVENT DATE: 20240520
